FAERS Safety Report 10722507 (Version 1)
Quarter: 2015Q1

REPORT INFORMATION
  Report Type: Spontaneous
  Country: DE (occurrence: DE)
  Receive Date: 20150120
  Receipt Date: 20150120
  Transmission Date: 20150721
  Serious: Yes (Other)
  Sender: FDA-Public Use
  Company Number: DE-AMGEN-DEUSP2015003483

PATIENT
  Age: 59 Year
  Sex: Male

DRUGS (3)
  1. ENBREL [Suspect]
     Active Substance: ETANERCEPT
     Indication: JUVENILE IDIOPATHIC ARTHRITIS
     Dosage: 1 INJECTION PER WEEK
     Route: 042
     Dates: start: 200811
  2. ORENCIA [Suspect]
     Active Substance: ABATACEPT
     Indication: JUVENILE IDIOPATHIC ARTHRITIS
     Dosage: 1 INJECTION PER WEEK
     Route: 042
     Dates: start: 200811
  3. KINERET [Suspect]
     Active Substance: ANAKINRA
     Indication: JUVENILE IDIOPATHIC ARTHRITIS
     Dosage: 1 INJECTION PER WEEK (SOLUTION FOR INJECTION; OP1)
     Route: 042
     Dates: start: 200811

REACTIONS (4)
  - Purulence [Unknown]
  - Polyneuropathy [Unknown]
  - Fluid retention [Unknown]
  - Juvenile idiopathic arthritis [Unknown]

NARRATIVE: CASE EVENT DATE: 200811
